FAERS Safety Report 10567338 (Version 3)
Quarter: 2014Q4

REPORT INFORMATION
  Report Type: Spontaneous
  Country: JP (occurrence: JP)
  Receive Date: 20141106
  Receipt Date: 20141112
  Transmission Date: 20150529
  Serious: Yes (Hospitalization)
  Sender: FDA-Public Use
  Company Number: JP-MERCK-1410JPN000690

PATIENT
  Age: 15 Year
  Sex: Male

DRUGS (3)
  1. SEIBULE [Concomitant]
     Active Substance: MIGLITOL
     Indication: SUICIDE ATTEMPT
     Dosage: THE NUMBER OF TABLETS TAKEN WAS UNKNOWN
     Route: 048
     Dates: start: 2014, end: 2014
  2. GLACTIV [Suspect]
     Active Substance: SITAGLIPTIN
     Indication: SUICIDE ATTEMPT
     Dosage: TOOK ABOUT 28 TO 30 TABLETS OF SITAGLIPTIN PHOSPHATE(GLACTIV) (DOSE UNSPECIFIED) AT ONE TIME
     Route: 048
     Dates: start: 2014, end: 2014
  3. AMARYL [Concomitant]
     Active Substance: GLIMEPIRIDE
     Indication: SUICIDE ATTEMPT
     Dosage: THE NUMBER OF TABLETS TAKEN WAS UNKNOWN
     Route: 048
     Dates: start: 2014, end: 2014

REACTIONS (3)
  - Hypoglycaemia [Recovered/Resolved]
  - Intentional product use issue [Unknown]
  - Intentional overdose [Unknown]

NARRATIVE: CASE EVENT DATE: 2014
